FAERS Safety Report 9697892 (Version 1)
Quarter: 2013Q4

REPORT INFORMATION
  Report Type: Spontaneous
  Country: US (occurrence: US)
  Receive Date: 20131120
  Receipt Date: 20131120
  Transmission Date: 20140711
  Serious: No
  Sender: FDA-Public Use
  Company Number: US-BAYER-2013-139540

PATIENT
  Age: 82 Year
  Sex: Female
  Weight: 54.88 kg

DRUGS (2)
  1. ALEVE TABLET [Suspect]
     Indication: ANALGESIC THERAPY
     Dosage: 2 DF, BID
     Route: 048
     Dates: start: 201111
  2. ALEVE TABLET [Suspect]
     Indication: SCIATICA

REACTIONS (3)
  - Extra dose administered [None]
  - Expired drug administered [None]
  - Drug ineffective [None]
